FAERS Safety Report 8517974 (Version 3)
Quarter: 2015Q2

REPORT INFORMATION
  Report Type: Spontaneous
  Country: US (occurrence: US)
  Receive Date: 20120417
  Receipt Date: 20150615
  Transmission Date: 20150821
  Serious: No
  Sender: FDA-Public Use
  Company Number: US-ASTRAZENECA-2011SE38287

PATIENT
  Age: 3215 Week
  Sex: Female
  Weight: 131.5 kg

DRUGS (2)
  1. NEXIUM [Suspect]
     Active Substance: ESOMEPRAZOLE MAGNESIUM
     Indication: GASTROOESOPHAGEAL REFLUX DISEASE
     Route: 048
     Dates: start: 2001
  2. NEXIUM [Suspect]
     Active Substance: ESOMEPRAZOLE MAGNESIUM
     Indication: RESTLESS LEGS SYNDROME
     Route: 048
     Dates: start: 2001

REACTIONS (5)
  - Bronchitis [Unknown]
  - Hypersensitivity [Unknown]
  - Dysphonia [Unknown]
  - Drug dose omission [Not Recovered/Not Resolved]
  - Off label use [Unknown]

NARRATIVE: CASE EVENT DATE: 20150506
